FAERS Safety Report 11376196 (Version 1)
Quarter: 2015Q3

REPORT INFORMATION
  Report Type: Report from Study
  Country: US (occurrence: US)
  Receive Date: 20150813
  Receipt Date: 20150813
  Transmission Date: 20151125
  Serious: Yes (Hospitalization, Other)
  Sender: FDA-Public Use
  Company Number: US-GILEAD-2015-0167427

PATIENT
  Age: 62 Year
  Sex: Female

DRUGS (11)
  1. BUMEX [Concomitant]
     Active Substance: BUMETANIDE
  2. SYNTHROID [Concomitant]
     Active Substance: LEVOTHYROXINE SODIUM
  3. DIGOXIN. [Concomitant]
     Active Substance: DIGOXIN
  4. POTASSIUM [Concomitant]
     Active Substance: POTASSIUM
  5. SPIRONOLACTONE. [Concomitant]
     Active Substance: SPIRONOLACTONE
  6. AVAPRO [Concomitant]
     Active Substance: IRBESARTAN
  7. LASIX [Concomitant]
     Active Substance: FUROSEMIDE
  8. METOLAZONE. [Concomitant]
     Active Substance: METOLAZONE
  9. LEXAPRO [Concomitant]
     Active Substance: ESCITALOPRAM OXALATE
  10. AMBRISENTAN [Suspect]
     Active Substance: AMBRISENTAN
     Indication: PULMONARY ARTERIAL HYPERTENSION
     Dosage: 5 MG, QD
     Route: 065
     Dates: start: 20120726
  11. REMODULIN [Concomitant]
     Active Substance: TREPROSTINIL

REACTIONS (2)
  - Fluid retention [Unknown]
  - Pulmonary hypertension [Unknown]
